FAERS Safety Report 5873906-4 (Version None)
Quarter: 2008Q3

REPORT INFORMATION
  Report Type: 
  Country: None (occurrence: None)
  Receive Date: 20080905
  Receipt Date: 20080905
  Transmission Date: 20090109
  Serious: No
  Sender: FDA-Public Use
  Company Number: None

PATIENT
  Sex: Male
  Weight: 160 kg

DRUGS (2)
  1. DAPTOMYCIN 500MG CUBIST [Suspect]
     Indication: STAPHYLOCOCCAL OSTEOMYELITIS
     Dosage: 930 MG Q24HRS IV DRIP
     Route: 041
     Dates: start: 20080820, end: 20080902
  2. INVANZ [Concomitant]

REACTIONS (2)
  - BLOOD CREATINE PHOSPHOKINASE INCREASED [None]
  - PAIN IN EXTREMITY [None]
